FAERS Safety Report 22132496 (Version 1)
Quarter: 2023Q1

REPORT INFORMATION
  Report Type: Spontaneous
  Country: US (occurrence: US)
  Receive Date: 20230323
  Receipt Date: 20230323
  Transmission Date: 20230417
  Serious: No
  Sender: FDA-Public Use
  Company Number: US-ALLERGAN-2233790US

PATIENT
  Sex: Female

DRUGS (2)
  1. LINZESS [Suspect]
     Active Substance: LINACLOTIDE
     Indication: Product used for unknown indication
     Dosage: 72 ?G, QD
     Route: 048
  2. LINZESS [Suspect]
     Active Substance: LINACLOTIDE
     Dosage: 290 ?G, QD
     Route: 048

REACTIONS (1)
  - Drug intolerance [Unknown]
